FAERS Safety Report 12439506 (Version 1)
Quarter: 2016Q2

REPORT INFORMATION
  Report Type: Spontaneous
  Country: GB (occurrence: GB)
  Receive Date: 20160606
  Receipt Date: 20160606
  Transmission Date: 20160815
  Serious: Yes (Other)
  Sender: FDA-Public Use
  Company Number: GB-GILEAD-2016-0215962

PATIENT
  Age: 45 Year
  Sex: Male
  Weight: 63.9 kg

DRUGS (1)
  1. HARVONI [Suspect]
     Active Substance: LEDIPASVIR\SOFOSBUVIR
     Indication: CHRONIC HEPATITIS C
     Dosage: 1 DF, UNK
     Route: 048
     Dates: start: 20160223, end: 20160517

REACTIONS (2)
  - Vision blurred [Recovering/Resolving]
  - Intraocular pressure increased [Recovering/Resolving]

NARRATIVE: CASE EVENT DATE: 20160507
